FAERS Safety Report 24222043 (Version 3)
Quarter: 2024Q4

REPORT INFORMATION
  Report Type: Spontaneous
  Country: NL (occurrence: NL)
  Receive Date: 20240819
  Receipt Date: 20241109
  Transmission Date: 20250114
  Serious: Yes (Hospitalization, Other)
  Sender: AUROBINDO
  Company Number: NL-EMA-DD-20240806-7482677-163140

PATIENT
  Age: 67 Year
  Sex: Female

DRUGS (12)
  1. BORTEZOMIB [Suspect]
     Active Substance: BORTEZOMIB
     Indication: Bone marrow conditioning regimen
     Dosage: UNK
     Route: 065
     Dates: start: 201305
  2. BORTEZOMIB [Suspect]
     Active Substance: BORTEZOMIB
     Indication: Plasma cell leukaemia
  3. CYCLOSPORINE [Suspect]
     Active Substance: CYCLOSPORINE
     Indication: Bone marrow conditioning regimen
     Dosage: UNK
     Route: 065
     Dates: start: 2014
  4. FLUDARABINE [Suspect]
     Active Substance: FLUDARABINE PHOSPHATE
     Indication: Bone marrow conditioning regimen
     Dosage: UNK
     Route: 065
     Dates: start: 2014
  5. MELPHALAN [Suspect]
     Active Substance: MELPHALAN
     Indication: Bone marrow conditioning regimen
     Dosage: UNK (HIGH DOSE)
     Route: 065
     Dates: start: 2014
  6. MELPHALAN [Suspect]
     Active Substance: MELPHALAN
     Indication: Plasma cell leukaemia
  7. DEXAMETHASONE [Suspect]
     Active Substance: DEXAMETHASONE
     Indication: Bone marrow conditioning regimen
     Dosage: UNK
     Route: 065
     Dates: start: 201305
  8. DEXAMETHASONE [Suspect]
     Active Substance: DEXAMETHASONE
     Indication: Plasma cell leukaemia
  9. CYCLOPHOSPHAMIDE [Suspect]
     Active Substance: CYCLOPHOSPHAMIDE
     Indication: Bone marrow conditioning regimen
     Dosage: UNK
     Route: 065
     Dates: start: 201305
  10. CYCLOPHOSPHAMIDE [Suspect]
     Active Substance: CYCLOPHOSPHAMIDE
     Indication: Plasma cell leukaemia
     Dosage: UNK
     Route: 065
     Dates: start: 2014
  11. RIBAVARIN [Suspect]
     Active Substance: RIBAVIRIN
     Indication: Metapneumovirus infection
     Dosage: 30 MILLIGRAM/KILOGRAM (30 MG/KG, 1X)
     Route: 042
     Dates: start: 2014
  12. RIBAVARIN [Suspect]
     Active Substance: RIBAVIRIN
     Indication: Metapneumovirus infection
     Dosage: 16 MILLIGRAM/KILOGRAM, ONCE A DAY (16 MG/KG, QD)
     Route: 042
     Dates: start: 2014

REACTIONS (8)
  - Respiratory failure [Recovering/Resolving]
  - Metapneumovirus infection [Recovering/Resolving]
  - Dyspnoea [Recovering/Resolving]
  - Pleural effusion [Recovering/Resolving]
  - Human metapneumovirus test positive [Recovering/Resolving]
  - Computerised tomogram abnormal [Recovering/Resolving]
  - Pyrexia [Recovering/Resolving]
  - Off label use [Unknown]

NARRATIVE: CASE EVENT DATE: 20140101
